FAERS Safety Report 12648202 (Version 1)
Quarter: 2016Q3

REPORT INFORMATION
  Report Type: Spontaneous
  Country: JP (occurrence: JP)
  Receive Date: 20160812
  Receipt Date: 20160812
  Transmission Date: 20161109
  Serious: Yes (Other)
  Sender: FDA-Public Use
  Company Number: JP-PFIZER INC-2016367860

PATIENT
  Age: 55 Year
  Sex: Male

DRUGS (9)
  1. VINCRISTINE [Suspect]
     Active Substance: VINCRISTINE
  2. ARA-C [Suspect]
     Active Substance: CYTARABINE
  3. CYCLOPHOSPHAMIDE. [Suspect]
     Active Substance: CYCLOPHOSPHAMIDE
  4. ETOPOSIDE. [Suspect]
     Active Substance: ETOPOSIDE
  5. DOXORUBICIN [Suspect]
     Active Substance: DOXORUBICIN
  6. RANIMUSTINE [Suspect]
     Active Substance: RANIMUSTINE
  7. METHOTREXATE. [Suspect]
     Active Substance: METHOTREXATE
  8. PREDNISOLONE. [Suspect]
     Active Substance: PREDNISOLONE
  9. RITUXIMAB [Suspect]
     Active Substance: RITUXIMAB

REACTIONS (1)
  - Hepatitis B [Unknown]
